FAERS Safety Report 7408991-1 (Version None)
Quarter: 2011Q2

REPORT INFORMATION
  Report Type: 
  Country: None (occurrence: None)
  Receive Date: 20110412
  Receipt Date: 20110405
  Transmission Date: 20111010
  Serious: Yes (Death)
  Sender: FDA-Public Use
  Company Number: JP-ASTRAZENECA-2011SE19942

PATIENT
  Age: 55 Year
  Sex: Male

DRUGS (2)
  1. MEROPEN [Suspect]
     Route: 042
  2. ANTIMICROBIAL DRUGS [Concomitant]

REACTIONS (1)
  - NEOPLASM MALIGNANT [None]
